FAERS Safety Report 15331299 (Version 1)
Quarter: 2018Q3

REPORT INFORMATION
  Report Type: Report from Study
  Country: US (occurrence: US)
  Receive Date: 20180829
  Receipt Date: 20180829
  Transmission Date: 20181010
  Serious: Yes (Hospitalization)
  Sender: FDA-Public Use
  Company Number: PHHY2018US080793

PATIENT
  Age: 3 Year
  Sex: Female
  Weight: 18.8 kg

DRUGS (3)
  1. NO TREATMENT RECEIVED [Suspect]
     Active Substance: UNSPECIFIED INGREDIENT
     Indication: PRODUCT USED FOR UNKNOWN INDICATION
     Route: 065
  2. TRAMETINIB [Suspect]
     Active Substance: TRAMETINIB
     Dosage: 0.2 MG, QD
     Route: 048
     Dates: start: 20180629
  3. TRAMETINIB [Suspect]
     Active Substance: TRAMETINIB
     Indication: ASTROCYTOMA
     Dosage: 0.4 MG, QD
     Route: 048
     Dates: start: 20161202, end: 20180607

REACTIONS (6)
  - Folliculitis [Unknown]
  - Rash [Recovered/Resolved]
  - Sepsis [Recovered/Resolved]
  - Staphylococcal scalded skin syndrome [Recovered/Resolved]
  - Cellulitis [Recovered/Resolved]
  - Pain [Unknown]

NARRATIVE: CASE EVENT DATE: 20180608
